FAERS Safety Report 22111398 (Version 2)
Quarter: 2023Q2

REPORT INFORMATION
  Report Type: Spontaneous
  Country: GB (occurrence: GB)
  Receive Date: 20230317
  Receipt Date: 20230418
  Transmission Date: 20230722
  Serious: Yes (Death, Life-Threatening, Hospitalization, Disabling, Other)
  Sender: FDA-Public Use
  Company Number: GB-LICONSA-2019-004448

PATIENT
  Age: 76 Year
  Sex: Male
  Weight: 69 kg

DRUGS (61)
  1. NITROGLYCERIN [Suspect]
     Active Substance: NITROGLYCERIN
     Indication: Product used for unknown indication
     Route: 065
  2. NITROGLYCERIN [Suspect]
     Active Substance: NITROGLYCERIN
  3. CEFUROXIME [Suspect]
     Active Substance: CEFUROXIME
     Indication: Product used for unknown indication
     Route: 065
     Dates: start: 20180131
  4. TACROLIMUS [Suspect]
     Active Substance: TACROLIMUS
     Indication: Renal transplant
     Dosage: TACROLIMUS 1.5 MG TWICE A DAY
     Route: 065
     Dates: start: 20100127, end: 20180130
  5. TACROLIMUS [Suspect]
     Active Substance: TACROLIMUS
     Indication: Renal transplant
     Dosage: TACROLIMUS 2 MG TWICE DAILY
     Route: 048
     Dates: start: 20180128
  6. TACROLIMUS [Suspect]
     Active Substance: TACROLIMUS
     Dosage: 1.5 MILLIGRAM, BID
     Route: 048
     Dates: start: 20100127, end: 20180130
  7. TACROLIMUS [Suspect]
     Active Substance: TACROLIMUS
     Dosage: 15 MILLIGRAM, BID
     Route: 048
     Dates: start: 20180127
  8. TACROLIMUS [Suspect]
     Active Substance: TACROLIMUS
     Dosage: 4 MILLIGRAM, QD
     Route: 048
  9. TACROLIMUS [Suspect]
     Active Substance: TACROLIMUS
     Dosage: 2 MILLIGRAM, BID
     Route: 048
     Dates: start: 20180128
  10. OMEPRAZOLE [Suspect]
     Active Substance: OMEPRAZOLE
     Indication: Duodenal ulcer
     Dosage: 20 MILLIGRAM, QD, MORNING
     Route: 048
  11. OMEPRAZOLE [Suspect]
     Active Substance: OMEPRAZOLE
     Dosage: 20 MG, MONTHLY
     Route: 048
  12. OMEPRAZOLE [Suspect]
     Active Substance: OMEPRAZOLE
     Dosage: 20 MILLIGRAM, MONTHLY (20 MG, QMO)
     Route: 048
  13. OMEPRAZOLE [Suspect]
     Active Substance: OMEPRAZOLE
     Dosage: 20 MILLIGRAM, QD (20 MG, QD MORNING )
     Route: 048
  14. BISOPROLOL [Interacting]
     Active Substance: BISOPROLOL
     Indication: Product used for unknown indication
     Route: 065
  15. CLARITHROMYCIN [Interacting]
     Active Substance: CLARITHROMYCIN
     Indication: Pneumonia
     Route: 042
     Dates: start: 20180127, end: 20180131
  16. CLARITHROMYCIN [Interacting]
     Active Substance: CLARITHROMYCIN
     Indication: Lower respiratory tract infection
     Route: 065
  17. CLARITHROMYCIN [Interacting]
     Active Substance: CLARITHROMYCIN
     Indication: Mediastinitis
  18. TACROLIMUS [Interacting]
     Active Substance: TACROLIMUS
     Indication: Renal transplant
     Route: 048
     Dates: start: 20180127, end: 20180131
  19. TACROLIMUS [Interacting]
     Active Substance: TACROLIMUS
     Indication: Prophylaxis against transplant rejection
     Route: 048
     Dates: start: 20100127, end: 20180130
  20. TACROLIMUS [Interacting]
     Active Substance: TACROLIMUS
     Route: 048
  21. TACROLIMUS [Interacting]
     Active Substance: TACROLIMUS
     Route: 065
     Dates: start: 20180128
  22. TACROLIMUS [Interacting]
     Active Substance: TACROLIMUS
     Dosage: 3 MILLIGRAM, QD (1.5 MG, BID)
     Route: 065
  23. TACROLIMUS [Interacting]
     Active Substance: TACROLIMUS
     Dosage: 30 MILLIGRAM, QD (15 MG, BID)
     Route: 048
  24. ENVARSUS XR [Suspect]
     Active Substance: TACROLIMUS
     Indication: Prophylaxis against transplant rejection
     Route: 065
  25. ENVARSUS XR [Suspect]
     Active Substance: TACROLIMUS
     Dosage: 3 MG, QD (1.5 MG, BID)
     Route: 048
  26. HYDROCORTISONE [Suspect]
     Active Substance: HYDROCORTISONE
     Indication: Product used for unknown indication
     Dosage: 150 MILLIGRAM, TID
     Route: 042
     Dates: start: 20180201
  27. HYDROCORTISONE [Suspect]
     Active Substance: HYDROCORTISONE
     Dosage: 50 MILLIGRAM, TID
     Route: 042
     Dates: start: 20180201
  28. HYDROCORTISONE [Suspect]
     Active Substance: HYDROCORTISONE
     Dosage: 150 MILLIGRAM, QD
     Route: 042
     Dates: start: 20180201
  29. HYDROCORTISONE [Suspect]
     Active Substance: HYDROCORTISONE
     Dosage: 150 MILLIGRAM, QD
     Route: 042
     Dates: start: 20180201
  30. DEXTROSE [Suspect]
     Active Substance: DEXTROSE\DEXTROSE MONOHYDRATE
     Indication: Product used for unknown indication
     Route: 065
  31. NITROGLYCERIN [Suspect]
     Active Substance: NITROGLYCERIN
     Indication: Product used for unknown indication
     Route: 065
  32. ALFACALCIDOL [Concomitant]
     Active Substance: ALFACALCIDOL
     Indication: Product used for unknown indication
     Dosage: ALFACALCIDOL 500NG OD PO O/A
     Route: 048
  33. CHOLECALCIFEROL [Concomitant]
     Active Substance: CHOLECALCIFEROL
     Indication: Product used for unknown indication
     Dosage: MORNING
     Route: 048
  34. CHOLECALCIFEROL [Concomitant]
     Active Substance: CHOLECALCIFEROL
     Dosage: 20 NG, MONTHLY
     Route: 048
  35. SENNOSIDES A AND B [Concomitant]
     Active Substance: SENNOSIDES A AND B
     Indication: Product used for unknown indication
     Dosage: 15 MG, UNK ON NIGHT
     Route: 048
  36. BETAHISTINE [Concomitant]
     Active Substance: BETAHISTINE
     Indication: Product used for unknown indication
     Dosage: MORNING
     Route: 048
  37. BETAHISTINE [Concomitant]
     Active Substance: BETAHISTINE
     Route: 048
  38. GLICLAZIDE [Concomitant]
     Active Substance: GLICLAZIDE
     Indication: Product used for unknown indication
     Dosage: MORNING
     Route: 048
  39. GLICLAZIDE [Concomitant]
     Active Substance: GLICLAZIDE
     Dosage: 40 MG, MONTHLY
     Route: 048
  40. EPLERENONE [Concomitant]
     Active Substance: EPLERENONE
     Indication: Product used for unknown indication
     Dosage: MORNING 25 MILLIGRAM, QD
     Route: 048
     Dates: end: 20180130
  41. EPLERENONE [Concomitant]
     Active Substance: EPLERENONE
     Dosage: 25 MG, MONTHLY
     Route: 048
  42. NITROGLYCERIN [Concomitant]
     Active Substance: NITROGLYCERIN
     Indication: Product used for unknown indication
     Route: 065
  43. ALLOPURINOL SODIUM [Concomitant]
     Active Substance: ALLOPURINOL SODIUM
     Indication: Product used for unknown indication
     Dosage: ALLOPURINOL 100MG OD PO O/A QD
     Route: 048
  44. DEXTROSE [Concomitant]
     Active Substance: DEXTROSE\DEXTROSE MONOHYDRATE
     Indication: Product used for unknown indication
     Dates: start: 20180130
  45. DOXYCYCLINE [Concomitant]
     Active Substance: DOXYCYCLINE
     Indication: Product used for unknown indication
     Dosage: 1 DOSAGE FORM
  46. PREDNISOLONE [Concomitant]
     Active Substance: PREDNISOLONE
     Indication: Product used for unknown indication
     Dates: start: 20180127
  47. PREDNISOLONE [Concomitant]
     Active Substance: PREDNISOLONE
     Dosage: INCREASE PREDNISOLONE TO 10 MG FOR 5 DAYS;
     Route: 048
  48. PREDNISOLONE [Concomitant]
     Active Substance: PREDNISOLONE
     Dosage: 5 MILLIGRAM, MONTHLY, START 27-JAN-2018
     Route: 048
  49. PREDNISOLONE [Concomitant]
     Active Substance: PREDNISOLONE
     Dosage: 5 MILLIGRAM, AM
     Route: 048
  50. PREDNISOLONE [Concomitant]
     Active Substance: PREDNISOLONE
     Dosage: INCREASE PREDNISOLONE TO 10 MG FOR 5 DAYS; 27-JAN-2018
  51. PREDNISOLONE [Concomitant]
     Active Substance: PREDNISOLONE
     Dosage: 5 MILLIGRAM, QD
     Route: 048
  52. GLUCOGEL [Concomitant]
     Indication: Product used for unknown indication
     Dates: start: 20180130
  53. FUROSEMIDE [Concomitant]
     Active Substance: FUROSEMIDE
     Indication: Product used for unknown indication
     Dosage: FUROSEMIDE 80MG OM PO O/A, 80 MILLIGRAM, QD
     Route: 048
     Dates: end: 20180130
  54. FUROSEMIDE [Concomitant]
     Active Substance: FUROSEMIDE
     Dosage: 40 MG, UNK 12 PM
     Route: 048
  55. FUROSEMIDE [Concomitant]
     Active Substance: FUROSEMIDE
     Route: 048
  56. FUROSEMIDE [Concomitant]
     Active Substance: FUROSEMIDE
     Dosage: 80MG MORNING, 40MG 12PM
     Route: 048
  57. HYDROCORTISONE [Concomitant]
     Active Substance: HYDROCORTISONE
     Indication: Product used for unknown indication
     Dosage: HYDRORTISIONE 50 MG THREE TIMES A DAY
     Route: 042
     Dates: end: 20180201
  58. ALBUTEROL [Concomitant]
     Active Substance: ALBUTEROL
     Indication: Product used for unknown indication
     Route: 065
  59. GLYCERYL [Concomitant]
     Indication: Product used for unknown indication
  60. GLUCAGON [Concomitant]
     Active Substance: GLUCAGON
     Indication: Product used for unknown indication
     Route: 030
     Dates: start: 20180130
  61. SENNA [Concomitant]
     Active Substance: SENNA LEAF\SENNOSIDES\SENNOSIDES A AND B
     Indication: Product used for unknown indication
     Dosage: 15 MILLIGRAM QD, PM, SENNA 15MG ON PO O/A
     Route: 048

REACTIONS (36)
  - Cardiac failure congestive [Fatal]
  - Myocardial ischaemia [Fatal]
  - Oesophageal carcinoma [Fatal]
  - Pneumonia [Fatal]
  - Acute kidney injury [Fatal]
  - Drug interaction [Fatal]
  - Oesophageal perforation [Fatal]
  - Productive cough [Fatal]
  - Rales [Fatal]
  - Pyrexia [Fatal]
  - Sepsis [Fatal]
  - Lower respiratory tract infection [Unknown]
  - Cough [Fatal]
  - Rash [Fatal]
  - Transplant failure [Fatal]
  - Cardiomegaly [Fatal]
  - Superinfection [Fatal]
  - Immunosuppressant drug level increased [Fatal]
  - Soft tissue mass [Fatal]
  - Multimorbidity [Fatal]
  - Lung consolidation [Fatal]
  - Labelled drug-drug interaction medication error [Fatal]
  - Renal impairment [Fatal]
  - Drug level increased [Fatal]
  - Toxicity to various agents [Fatal]
  - Dyspnoea [Fatal]
  - Oesophageal perforation [Unknown]
  - Swelling [Fatal]
  - Hypoglycaemia [Fatal]
  - Pleural effusion [Fatal]
  - Inflammatory marker increased [Fatal]
  - Ascites [Fatal]
  - Oesophageal carcinoma [Fatal]
  - Dysphagia [Fatal]
  - Malaise [Fatal]
  - Haemoptysis [Unknown]

NARRATIVE: CASE EVENT DATE: 20180118
